FAERS Safety Report 13404207 (Version 3)
Quarter: 2017Q2

REPORT INFORMATION
  Report Type: Spontaneous
  Country: RU (occurrence: RU)
  Receive Date: 20170405
  Receipt Date: 20170512
  Transmission Date: 20170830
  Serious: Yes (Hospitalization)
  Sender: FDA-Public Use
  Company Number: RU-ASTRAZENECA-2017SE21402

PATIENT
  Age: 64 Year
  Sex: Female
  Weight: 63 kg

DRUGS (10)
  1. NITROGLYCERIN. [Concomitant]
     Active Substance: NITROGLYCERIN
  2. THROMBO ASS [Concomitant]
     Active Substance: ASPIRIN
  3. OMEPRAZOLE. [Concomitant]
     Active Substance: OMEPRAZOLE
  4. BETALOC [Concomitant]
     Active Substance: METOPROLOL TARTRATE
  5. FOSINOPRIL [Concomitant]
     Active Substance: FOSINOPRIL
  6. BRILINTA [Suspect]
     Active Substance: TICAGRELOR
     Indication: ANGINA UNSTABLE
     Route: 048
     Dates: start: 20170111
  7. PHYSIOTENS [Concomitant]
     Active Substance: MOXONIDINE
     Dosage: 0.4MG UNKNOWN
  8. CANDESARTAN. [Concomitant]
     Active Substance: CANDESARTAN
  9. INDAPAMIDE. [Concomitant]
     Active Substance: INDAPAMIDE
  10. ROSUVASTATIN. [Concomitant]
     Active Substance: ROSUVASTATIN

REACTIONS (2)
  - Contusion [Not Recovered/Not Resolved]
  - Myocardial ischaemia [Recovered/Resolved]

NARRATIVE: CASE EVENT DATE: 201701
